FAERS Safety Report 5980265-5 (Version None)
Quarter: 2008Q4

REPORT INFORMATION
  Report Type: 
  Country: None (occurrence: None)
  Receive Date: 20081205
  Receipt Date: 20081127
  Transmission Date: 20090506
  Serious: Yes (Hospitalization)
  Sender: FDA-Public Use
  Company Number: PHHY2008IT27591

PATIENT
  Sex: Male

DRUGS (1)
  1. EXJADE [Suspect]
     Indication: THALASSAEMIA BETA
     Dosage: 750MG/DAY
     Route: 048
     Dates: start: 20060517, end: 20080912

REACTIONS (3)
  - ABDOMINAL PAIN [None]
  - DYSPEPSIA [None]
  - FANCONI SYNDROME [None]
